FAERS Safety Report 9121383 (Version 3)
Quarter: 2015Q1

REPORT INFORMATION
  Report Type: Spontaneous
  Country: US (occurrence: US)
  Receive Date: 20130225
  Receipt Date: 20150130
  Transmission Date: 20150721
  Serious: Yes (Hospitalization, Other)
  Sender: FDA-Public Use
  Company Number: US-BAYER-2013-021024

PATIENT
  Age: 20 Year
  Sex: Female
  Weight: 67.12 kg

DRUGS (3)
  1. CLOMID [Concomitant]
     Active Substance: CLOMIPHENE CITRATE
  2. MIRENA [Suspect]
     Active Substance: LEVONORGESTREL
     Indication: CONTRACEPTION
     Dosage: 20 MCG/24HR, CONT
     Route: 015
     Dates: start: 20090607, end: 20111215
  3. DIFLUCAN [Concomitant]
     Active Substance: FLUCONAZOLE

REACTIONS (17)
  - Injury [None]
  - Pain [None]
  - Headache [None]
  - Anxiety [None]
  - Uterine perforation [None]
  - Gastrointestinal injury [None]
  - Discomfort [None]
  - Anhedonia [None]
  - Pregnancy with contraceptive device [None]
  - Drug ineffective [None]
  - Device issue [None]
  - Abortion spontaneous [None]
  - Depression [None]
  - Emotional distress [None]
  - Abdominal pain [None]
  - Genital haemorrhage [None]
  - Alopecia [None]

NARRATIVE: CASE EVENT DATE: 200906
